FAERS Safety Report 25139342 (Version 1)
Quarter: 2025Q1

REPORT INFORMATION
  Report Type: Spontaneous
  Country: CN (occurrence: CN)
  Receive Date: 20250331
  Receipt Date: 20250331
  Transmission Date: 20250408
  Serious: Yes (Other)
  Sender: NOVARTIS
  Company Number: CN-002147023-NVSC2025CN050033

PATIENT
  Age: 39 Year
  Sex: Female
  Weight: 65 kg

DRUGS (3)
  1. TRILEPTAL [Suspect]
     Active Substance: OXCARBAZEPINE
     Indication: Toxicity to various agents
     Dosage: 0.3 G, BID
     Route: 048
     Dates: start: 20250318, end: 20250318
  2. VALPROATE SODIUM [Concomitant]
     Active Substance: VALPROATE SODIUM
     Indication: Toxicity to various agents
     Dosage: 0.5 G, BID (SUSTAINED RELEASE TABLET)
     Route: 048
     Dates: start: 20250318, end: 20250318
  3. CLONAZEPAM [Concomitant]
     Active Substance: CLONAZEPAM
     Indication: Toxicity to various agents
     Dosage: 0.5 MG, QD
     Route: 048
     Dates: start: 20250318, end: 20250318

REACTIONS (20)
  - Hepatic function abnormal [Recovering/Resolving]
  - Hyperpyrexia [Unknown]
  - Nephropathy toxic [Unknown]
  - Myocardial necrosis marker increased [Unknown]
  - Oxygen saturation decreased [Unknown]
  - C-reactive protein increased [Unknown]
  - White blood cell count increased [Unknown]
  - Neutrophil count increased [Unknown]
  - Lymphocyte count decreased [Unknown]
  - Peripheral coldness [Unknown]
  - Cyanosis [Unknown]
  - Nail bed disorder [Unknown]
  - Sinus tachycardia [Unknown]
  - Electrocardiogram T wave abnormal [Unknown]
  - Flushing [Unknown]
  - Hypotension [Unknown]
  - Red blood cell count decreased [Unknown]
  - Platelet count decreased [Unknown]
  - Oedema [Unknown]
  - Off label use [Unknown]

NARRATIVE: CASE EVENT DATE: 20250320
